FAERS Safety Report 8539618-3 (Version None)
Quarter: 2012Q3

REPORT INFORMATION
  Report Type: 
  Country: None (occurrence: None)
  Receive Date: 20120726
  Receipt Date: 20120723
  Transmission Date: 20120928
  Serious: Yes (Other)
  Sender: FDA-Public Use
  Company Number: US-PFIZER INC-2012171348

PATIENT
  Sex: Male
  Weight: 63.946 kg

DRUGS (5)
  1. ALPRAZOLAM [Suspect]
     Indication: PANIC DISORDER
     Dosage: UNK
  2. XANAX [Suspect]
     Indication: COLITIS
     Dosage: 1 MG, 4X/DAY
     Dates: end: 20080101
  3. XANAX [Suspect]
     Indication: PANIC DISORDER
     Dosage: 1 MG, 4X/DAY
     Route: 048
     Dates: start: 19900101
  4. XANAX [Suspect]
     Dosage: 1 MG, 3X/DAY
  5. XANAX [Suspect]
     Dosage: 0.5 MG, 4X/DAY
     Dates: start: 20080101

REACTIONS (8)
  - EMPHYSEMA [None]
  - PANIC ATTACK [None]
  - FUNCTIONAL GASTROINTESTINAL DISORDER [None]
  - MALAISE [None]
  - CHRONIC OBSTRUCTIVE PULMONARY DISEASE [None]
  - LUNG NEOPLASM MALIGNANT [None]
  - LUNG DISORDER [None]
  - CARDIAC DISORDER [None]
